FAERS Safety Report 24261471 (Version 3)
Quarter: 2024Q4

REPORT INFORMATION
  Report Type: Spontaneous
  Country: US (occurrence: US)
  Receive Date: 20240829
  Receipt Date: 20241011
  Transmission Date: 20250115
  Serious: No
  Sender: JOHNSON AND JOHNSON
  Company Number: US-JNJFOC-20240869202

PATIENT
  Sex: Male

DRUGS (4)
  1. RISPERDAL [Suspect]
     Active Substance: RISPERIDONE
     Indication: Aggression
     Dosage: 0.25 MG TWICE DAILY
     Route: 048
     Dates: start: 20160407
  2. RISPERDAL [Suspect]
     Active Substance: RISPERIDONE
     Indication: Anger
     Dosage: 1.5 MG TWICE DAILY (0.5 MG ONCE IN THE MORNING AND 1 MG AT SLEEP TIME)
     Route: 048
     Dates: start: 20160426, end: 2017
  3. RISPERDAL [Suspect]
     Active Substance: RISPERIDONE
     Indication: Mood swings
  4. CONCERTA [Suspect]
     Active Substance: METHYLPHENIDATE HYDROCHLORIDE
     Indication: Attention deficit hyperactivity disorder
     Dosage: VARYING DOSES OF 18 AND 36 MG ONCE DAILY IN THE MORNING
     Route: 048
     Dates: end: 2017

REACTIONS (2)
  - Drug ineffective [Unknown]
  - Product dose omission issue [Unknown]
